FAERS Safety Report 10075269 (Version 1)
Quarter: 2014Q2

REPORT INFORMATION
  Report Type: Spontaneous
  Country: US (occurrence: US)
  Receive Date: 20140414
  Receipt Date: 20140414
  Transmission Date: 20141212
  Serious: No
  Sender: FDA-Public Use
  Company Number: US-BIOGENIDEC-2014BI030415

PATIENT
  Sex: Female

DRUGS (14)
  1. TECFIDERA [Suspect]
     Indication: MULTIPLE SCLEROSIS
     Route: 048
     Dates: start: 20140115, end: 20140314
  2. TECFIDERA [Suspect]
     Indication: MULTIPLE SCLEROSIS
     Route: 048
     Dates: start: 20140328
  3. PRILOSEC [Concomitant]
  4. PREMARIN [Concomitant]
  5. LYRICA [Concomitant]
  6. RITALIN [Concomitant]
  7. MOBIC [Concomitant]
  8. CYMBALTA [Concomitant]
  9. LORATAB [Concomitant]
  10. LASIX [Concomitant]
  11. POTASSIUM [Concomitant]
  12. CALCIUM [Concomitant]
  13. TIZANIDINE [Concomitant]
  14. ATORVASTIN [Concomitant]

REACTIONS (2)
  - Pain [Unknown]
  - Gait disturbance [Unknown]
